FAERS Safety Report 23347959 (Version 1)
Quarter: 2023Q4

REPORT INFORMATION
  Report Type: Spontaneous
  Country: US (occurrence: US)
  Receive Date: 20231228
  Receipt Date: 20231228
  Transmission Date: 20240110
  Serious: Yes (Other)
  Sender: FDA-Public Use
  Company Number: US-PPDUS-2023ST005323

PATIENT
  Age: 59 Year
  Sex: Female

DRUGS (1)
  1. ORSERDU [Suspect]
     Active Substance: ELACESTRANT
     Indication: Product used for unknown indication
     Dosage: 345 MG DAILY
     Route: 048
     Dates: start: 20231117

REACTIONS (6)
  - Foreign body in throat [Recovered/Resolved]
  - Product size issue [Unknown]
  - Salivary hypersecretion [Unknown]
  - Nausea [Unknown]
  - Abdominal discomfort [Unknown]
  - Dyspepsia [Unknown]
